FAERS Safety Report 17033244 (Version 2)
Quarter: 2020Q3

REPORT INFORMATION
  Report Type: Spontaneous
  Country: US (occurrence: US)
  Receive Date: 20191114
  Receipt Date: 20200819
  Transmission Date: 20201102
  Serious: No
  Sender: FDA-Public Use
  Company Number: US-SA-2019SA309708

PATIENT

DRUGS (8)
  1. CYMBALTA [Concomitant]
     Active Substance: DULOXETINE HYDROCHLORIDE
  2. DIPHENHYDRAMINE. [Concomitant]
     Active Substance: DIPHENHYDRAMINE
  3. HYDROXYZINE [Concomitant]
     Active Substance: HYDROXYZINE HYDROCHLORIDE
  4. BETAMETHASONE VALERATE. [Concomitant]
     Active Substance: BETAMETHASONE VALERATE
  5. PROCTOZONE HC [Concomitant]
     Active Substance: HYDROCORTISONE
  6. MELOXICAM. [Concomitant]
     Active Substance: MELOXICAM
  7. DUPIXENT [Suspect]
     Active Substance: DUPILUMAB
     Indication: DERMATITIS ATOPIC
     Dosage: 300 MG, QOW
     Route: 058
     Dates: start: 20190701
  8. TOPIRAMATE. [Concomitant]
     Active Substance: TOPIRAMATE

REACTIONS (3)
  - Fatigue [Unknown]
  - Rash [Unknown]
  - Injection site reaction [Unknown]

NARRATIVE: CASE EVENT DATE: 20191101
